FAERS Safety Report 24743436 (Version 1)
Quarter: 2024Q4

REPORT INFORMATION
  Report Type: Spontaneous
  Country: US (occurrence: None)
  Receive Date: 20241216
  Receipt Date: 20241216
  Transmission Date: 20250115
  Serious: Yes (Other)
  Sender: Public
  Company Number: None

PATIENT
  Age: 28 Year
  Sex: Female
  Weight: 72 kg

DRUGS (1)
  1. ARIPIPRAZOLE [Suspect]
     Active Substance: ARIPIPRAZOLE
     Indication: Mental disorder
     Dosage: 1 TABLET DAILY ORAL
     Route: 048

REACTIONS (8)
  - Genital hypoaesthesia [None]
  - Anorgasmia [None]
  - Sexual aversion disorder [None]
  - Loss of libido [None]
  - Anhedonia [None]
  - Drug ineffective [None]
  - Therapy cessation [None]
  - Sexual dysfunction [None]
